FAERS Safety Report 6587711-7 (Version None)
Quarter: 2010Q1

REPORT INFORMATION
  Report Type: 
  Country: None (occurrence: None)
  Receive Date: 20100218
  Receipt Date: 20091113
  Transmission Date: 20100710
  Serious: No
  Sender: FDA-Public Use
  Company Number: A0814407A

PATIENT
  Sex: Female

DRUGS (1)
  1. COREG CR [Suspect]
     Indication: DRUG USE FOR UNKNOWN INDICATION
     Dosage: 20MG UNKNOWN
     Route: 065

REACTIONS (2)
  - DISCOMFORT [None]
  - SENSATION OF FOREIGN BODY [None]
